FAERS Safety Report 8242317-9 (Version None)
Quarter: 2012Q1

REPORT INFORMATION
  Report Type: 
  Country: None (occurrence: None)
  Receive Date: 20120314
  Receipt Date: 20101018
  Transmission Date: 20120608
  Serious: Yes (Other)
  Sender: FDA-Public Use
  Company Number: PHHY2010US70827

PATIENT
  Age: 40 Year
  Sex: Female

DRUGS (1)
  1. FANAPT [Suspect]

REACTIONS (1)
  - EPISTAXIS [None]
